FAERS Safety Report 24093830 (Version 1)
Quarter: 2024Q3

REPORT INFORMATION
  Report Type: Report from Study
  Country: US (occurrence: US)
  Receive Date: 20240716
  Receipt Date: 20240716
  Transmission Date: 20241017
  Serious: Yes (Other)
  Sender: ABBVIE
  Company Number: US-ABBVIE-5835316

PATIENT

DRUGS (1)
  1. QULIPTA [Suspect]
     Active Substance: ATOGEPANT
     Indication: Migraine
     Route: 048

REACTIONS (14)
  - Seizure [Not Recovered/Not Resolved]
  - Pain of skin [Unknown]
  - Drug ineffective [Unknown]
  - Pruritus [Unknown]
  - Loss of personal independence in daily activities [Unknown]
  - Depressed mood [Unknown]
  - Urticaria [Unknown]
  - Migraine [Not Recovered/Not Resolved]
  - Depression [Unknown]
  - Formication [Unknown]
  - Skin burning sensation [Unknown]
  - Stevens-Johnson syndrome [Unknown]
  - Epilepsy [Unknown]
  - Neuralgia [Unknown]
